FAERS Safety Report 24059714 (Version 1)
Quarter: 2024Q3

REPORT INFORMATION
  Report Type: Report from Study
  Country: US (occurrence: US)
  Receive Date: 20240708
  Receipt Date: 20240708
  Transmission Date: 20241016
  Serious: Yes (Other)
  Sender: JOHNSON AND JOHNSON
  Company Number: US-JNJFOC-20240679020

PATIENT
  Age: 57 Year
  Sex: Female

DRUGS (2)
  1. SPRAVATO [Suspect]
     Active Substance: ESKETAMINE
     Indication: Depression
     Dosage: ^^56 MG, 7 TOTAL DOSES^^
     Dates: start: 20231005, end: 20231120
  2. SPRAVATO [Suspect]
     Active Substance: ESKETAMINE
     Dosage: ^^84 MG, 2 TOTAL DOSES^^
     Dates: start: 20240212, end: 20240622

REACTIONS (5)
  - Humerus fracture [Unknown]
  - Fall [Unknown]
  - Tooth fracture [Unknown]
  - Crying [Unknown]
  - Nervousness [Unknown]
